FAERS Safety Report 10480525 (Version 1)
Quarter: 2014Q3

REPORT INFORMATION
  Report Type: Spontaneous
  Country: US (occurrence: None)
  Receive Date: 20140925
  Receipt Date: 20140925
  Transmission Date: 20150326
  Serious: Yes (Disabling)
  Sender: FDA-Public Use
  Company Number: 2539618

PATIENT
  Age: 64 Year
  Sex: Female

DRUGS (2)
  1. PRILOCAINE [Suspect]
     Active Substance: PRILOCAINE
     Indication: LOCAL ANAESTHESIA
  2. ARTICAINE HYDROCHLORIDE [Suspect]
     Active Substance: ARTICAINE HYDROCHLORIDE
     Indication: LOCAL ANAESTHESIA

REACTIONS (7)
  - Hypoaesthesia oral [None]
  - XIIth nerve injury [None]
  - Tongue atrophy [None]
  - Tongue paralysis [None]
  - Dysarthria [None]
  - Cranial nerve injury [None]
  - Anaesthetic complication [None]
